FAERS Safety Report 24175664 (Version 2)
Quarter: 2024Q3

REPORT INFORMATION
  Report Type: Spontaneous
  Country: FR (occurrence: FR)
  Receive Date: 20240805
  Receipt Date: 20240815
  Transmission Date: 20241016
  Serious: Yes (Other)
  Sender: ANI
  Company Number: FR-ANIPHARMA-2024-FR-000126

PATIENT
  Age: 89 Year
  Sex: Male
  Weight: 103 kg

DRUGS (9)
  1. CANDESARTAN CILEXETIL [Suspect]
     Active Substance: CANDESARTAN CILEXETIL
     Indication: Hypertension
     Dosage: 8 MG DAILY
     Route: 048
     Dates: end: 20240625
  2. ATENOLOL [Suspect]
     Active Substance: ATENOLOL
     Dosage: 50 MG DAILY
     Route: 048
     Dates: end: 20240630
  3. SKENAN [Suspect]
     Active Substance: MORPHINE SULFATE
     Dosage: 20 MG Q12H
     Route: 048
     Dates: start: 20240625, end: 20240706
  4. CHOLECALCIFEROL [Suspect]
     Active Substance: CHOLECALCIFEROL
     Dosage: 50000 IU MONTH
     Route: 048
     Dates: end: 20240705
  5. FEBUXOSTAT [Suspect]
     Active Substance: FEBUXOSTAT
     Dosage: 80 MG DAILY
     Route: 048
     Dates: end: 20240625
  6. FLUINDIONE [Suspect]
     Active Substance: FLUINDIONE
     Dosage: 10 MG DAILY
     Route: 048
     Dates: end: 20240707
  7. POLYETHYLENE GLYCOL 4000 [Suspect]
     Active Substance: POLYETHYLENE GLYCOL 4000
     Dosage: 1 DF INT
     Route: 048
     Dates: start: 20240626, end: 20240703
  8. ACETAMINOPHEN [Suspect]
     Active Substance: ACETAMINOPHEN
     Dosage: 1 G Q12H
     Route: 048
     Dates: end: 20240708
  9. CEFTRIAXONE [Suspect]
     Active Substance: CEFTRIAXONE\CEFTRIAXONE SODIUM
     Dosage: 1 G DAILY
     Route: 042
     Dates: start: 20240701, end: 20240709

REACTIONS (1)
  - Cholestasis [Unknown]

NARRATIVE: CASE EVENT DATE: 20240703
